FAERS Safety Report 19985579 (Version 2)
Quarter: 2021Q4

REPORT INFORMATION
  Report Type: Spontaneous
  Country: US (occurrence: US)
  Receive Date: 20211021
  Receipt Date: 20211109
  Transmission Date: 20220303
  Serious: Yes (Other)
  Sender: FDA-Public Use
  Company Number: US-JNJFOC-20211025285

PATIENT
  Age: 50 Year
  Sex: Male

DRUGS (3)
  1. REMICADE [Suspect]
     Active Substance: INFLIXIMAB
     Indication: Crohn^s disease
     Route: 042
     Dates: start: 2015
  2. METHOTREXATE [Suspect]
     Active Substance: METHOTREXATE
     Indication: Crohn^s disease
     Route: 065
     Dates: start: 2015
  3. TOFACITINIB [Suspect]
     Active Substance: TOFACITINIB
     Indication: Crohn^s disease
     Route: 065
     Dates: start: 2016

REACTIONS (3)
  - Pneumonia legionella [Unknown]
  - Legionella infection [Unknown]
  - Therapeutic product effect incomplete [Unknown]
